FAERS Safety Report 4994748-8 (Version None)
Quarter: 2006Q2

REPORT INFORMATION
  Report Type: 
  Country: None (occurrence: None)
  Receive Date: 20060505
  Receipt Date: 20060106
  Transmission Date: 20061013
  Serious: Yes (Congenital Anomaly)
  Sender: FDA-Public Use
  Company Number: US-ABBOTT-06P-163-0321390-00

PATIENT
  Sex: Female
  Weight: 2.49 kg

DRUGS (9)
  1. NORVIR [Suspect]
     Indication: DRUG EXPOSURE DURING PREGNANCY
  2. LAMIVUDINE [Suspect]
     Indication: DRUG EXPOSURE DURING PREGNANCY
  3. STAVUDINE [Suspect]
     Indication: DRUG EXPOSURE DURING PREGNANCY
  4. ATAZANAVIR SULFATE [Suspect]
     Indication: DRUG EXPOSURE DURING PREGNANCY
  5. ATAZANAVIR SULFATE [Suspect]
     Route: 048
     Dates: start: 20051026
  6. TENOFOVIR DISOPROXIL FUMARATE/EMTRICITABINE [Suspect]
     Indication: DRUG EXPOSURE DURING PREGNANCY
  7. ABACAVIR/LAMIVUDINE [Suspect]
     Indication: DRUG EXPOSURE DURING PREGNANCY
  8. ZIDOVUDINE [Suspect]
     Indication: DRUG EXPOSURE DURING PREGNANCY
     Dosage: 2MG/KG/HR
     Route: 042
     Dates: start: 20060115, end: 20060115
  9. ZIDOVUDINE [Suspect]
     Dosage: 1MG/KG/HR
     Dates: start: 20060115, end: 20060115

REACTIONS (5)
  - CONGENITAL HYDRONEPHROSIS [None]
  - DRUG EXPOSURE DURING PREGNANCY [None]
  - FALLOT'S TETRALOGY [None]
  - TRISOMY 21 [None]
  - ULTRASOUND ANTENATAL SCREEN ABNORMAL [None]
